FAERS Safety Report 8064516-1 (Version None)
Quarter: 2012Q1

REPORT INFORMATION
  Report Type: 
  Country: None (occurrence: None)
  Receive Date: 20120123
  Receipt Date: 20120120
  Transmission Date: 20120608
  Serious: Yes (Death, Hospitalization, Other)
  Sender: FDA-Public Use
  Company Number: DK-PFIZER INC-2011238314

PATIENT
  Age: 35 Year
  Sex: Female

DRUGS (4)
  1. VARENICLINE TARTRATE [Suspect]
     Indication: SMOKING CESSATION THERAPY
     Dosage: UNK
     Route: 048
     Dates: start: 20110201, end: 20110101
  2. NORGESTIMATE AND ETHINYL ESTRADIOL [Concomitant]
     Indication: CONTRACEPTION
     Dates: start: 19981028
  3. VARENICLINE TARTRATE [Suspect]
     Dosage: UNK
     Dates: start: 20110501, end: 20110101
  4. VARENICLINE TARTRATE [Suspect]
     Dosage: UNK
     Dates: start: 20110101, end: 20110701

REACTIONS (8)
  - SYNCOPE [None]
  - PALPITATIONS [None]
  - CARDIAC ARREST [None]
  - STRESS [None]
  - MALAISE [None]
  - DIZZINESS [None]
  - ACUTE MYOCARDIAL INFARCTION [None]
  - CHEST PAIN [None]
